FAERS Safety Report 9111216 (Version 1)
Quarter: 2013Q1

REPORT INFORMATION
  Report Type: Spontaneous
  Country: US (occurrence: US)
  Receive Date: 20130219
  Receipt Date: 20130219
  Transmission Date: 20140127
  Serious: No
  Sender: FDA-Public Use
  Company Number: US-BRISTOL-MYERS SQUIBB COMPANY-16735375

PATIENT
  Age: 64 Year
  Sex: Female

DRUGS (1)
  1. ORENCIA FOR INJ [Suspect]
     Dosage: SECOND INFUSION BEING 17APR2012
     Route: 042
     Dates: start: 201204

REACTIONS (3)
  - Drug ineffective [Unknown]
  - Stress [Unknown]
  - Thyroid disorder [Unknown]
